FAERS Safety Report 15733717 (Version 2)
Quarter: 2018Q4

REPORT INFORMATION
  Report Type: Report from Study
  Country: DE (occurrence: DE)
  Receive Date: 20181218
  Receipt Date: 20181225
  Transmission Date: 20190205
  Serious: Yes (Hospitalization)
  Sender: FDA-Public Use
  Company Number: DE-ROCHE-2228471

PATIENT
  Age: 71 Year
  Sex: Male
  Weight: 74 kg

DRUGS (7)
  1. VENETOCLAX. [Suspect]
     Active Substance: VENETOCLAX
     Indication: CHRONIC LYMPHOCYTIC LEUKAEMIA
     Dosage: ON 13/MAY/2018, HE RECEIVED THE MOST RECENT DOSE (100 MG) OF VENETOCLAX PRIOR TO AE (ADVERSE EVENT)
     Route: 048
     Dates: start: 20171129, end: 20180514
  2. ATORVASTATIN [Concomitant]
     Active Substance: ATORVASTATIN
     Route: 048
  3. COTRIM FORTE [Concomitant]
     Active Substance: SULFAMETHOXAZOLE\TRIMETHOPRIM
     Route: 065
     Dates: start: 20171113
  4. IBRUTINIB [Suspect]
     Active Substance: IBRUTINIB
     Indication: CHRONIC LYMPHOCYTIC LEUKAEMIA
     Dosage: ON 08/SEP/2018, HE RECEIVED THE MOST RECENT DOSE (420 MG) OF IBRUTINIB PRIOR TO AE (ADVERSE EVENT) O
     Route: 048
     Dates: start: 20171108, end: 20181012
  5. ACYCLOVIR. [Concomitant]
     Active Substance: ACYCLOVIR
     Route: 048
     Dates: start: 20171111
  6. OBINUTUZUMAB. [Suspect]
     Active Substance: OBINUTUZUMAB
     Indication: CHRONIC LYMPHOCYTIC LEUKAEMIA
     Dosage: ON 05/SEP/2018, HE RECEIVED THE MOST RECENT DOSE (1000 MG) OF OBINUTUZUMAB PRIOR TO AE (ADVERSE EVEN
     Route: 042
     Dates: start: 20171108
  7. FENOFIBRAT [Concomitant]
     Active Substance: FENOFIBRATE
     Route: 048

REACTIONS (1)
  - Basal cell carcinoma [Recovered/Resolved]

NARRATIVE: CASE EVENT DATE: 20181009
